FAERS Safety Report 4786870-6 (Version None)
Quarter: 2005Q3

REPORT INFORMATION
  Report Type: 
  Country: None (occurrence: None)
  Receive Date: 20050930
  Receipt Date: 20050915
  Transmission Date: 20060218
  Serious: Yes (Hospitalization)
  Sender: FDA-Public Use
  Company Number: TCI2002A02954

PATIENT
  Age: 72 Year
  Sex: Male

DRUGS (9)
  1. PIOGLITAZONE HYDROCHLORIDE (PIOGLITAZONE HYDROCHLORIDE) [Suspect]
     Indication: DIABETES MELLITUS NON-INSULIN-DEPENDENT
     Dosage: SEE IMAGE
     Route: 048
     Dates: start: 20020815, end: 20020816
  2. PIOGLITAZONE HYDROCHLORIDE (PIOGLITAZONE HYDROCHLORIDE) [Suspect]
     Indication: DIABETES MELLITUS NON-INSULIN-DEPENDENT
     Dosage: SEE IMAGE
     Route: 048
     Dates: start: 20021029, end: 20030120
  3. PIOGLITAZONE HYDROCHLORIDE (PIOGLITAZONE HYDROCHLORIDE) [Suspect]
     Indication: DIABETES MELLITUS NON-INSULIN-DEPENDENT
     Dosage: SEE IMAGE
     Route: 048
     Dates: start: 20030121, end: 20030519
  4. PIOGLITAZONE HYDROCHLORIDE (PIOGLITAZONE HYDROCHLORIDE) [Suspect]
     Indication: DIABETES MELLITUS NON-INSULIN-DEPENDENT
     Dosage: SEE IMAGE
     Route: 048
     Dates: start: 20020520, end: 20030828
  5. PIOGLITAZONE HYDROCHLORIDE (PIOGLITAZONE HYDROCHLORIDE) [Suspect]
     Indication: DIABETES MELLITUS NON-INSULIN-DEPENDENT
     Dosage: SEE IMAGE
     Route: 048
     Dates: start: 20031023, end: 20040222
  6. AMARYL [Concomitant]
  7. NIVADIL (NILVADIPINE) [Concomitant]
  8. THEO-DUR [Concomitant]
  9. MUCOSOLVAN L (AMBROXOL HYDROCHLORIDE) [Concomitant]

REACTIONS (12)
  - ANXIETY [None]
  - ASTHMA [None]
  - CONSTIPATION [None]
  - EXERCISE LACK OF [None]
  - FLATULENCE [None]
  - GASTRITIS EROSIVE [None]
  - GASTROINTESTINAL MOTILITY DISORDER [None]
  - HYPOAESTHESIA [None]
  - HYPOGLYCAEMIA [None]
  - ORAL INTAKE REDUCED [None]
  - RASH [None]
  - TINEA PEDIS [None]
